FAERS Safety Report 7807620 (Version 3)
Quarter: 2013Q2

REPORT INFORMATION
  Report Type: Spontaneous
  Country: US (occurrence: None)
  Receive Date: 20101130
  Receipt Date: 20121203
  Transmission Date: 20140414
  Serious: Yes (Hospitalization, Other)
  Sender: FDA-Public Use
  Company Number: 2009SP029611

PATIENT
  Age: 26 Year
  Sex: Female
  Weight: 86.2 kg

DRUGS (7)
  1. NUVARING (ETONOGESTREL (+) ETHINYL ESTRADIOL) VAGINAL RING [Suspect]
     Indication: HAEMORRHAGE
     Dates: start: 2004, end: 2006
  2. NUVARING (ETONOGESTREL (+) ETHINYL ESTRADIOL) VAGINAL RING [Suspect]
     Indication: CONTRACEPTION
     Dates: start: 2004, end: 2006
  3. NUVARING (ETONOGESTREL (+) ETHINYL ESTRADIOL) VAGINAL RING [Suspect]
     Indication: MUSCLE SPASMS
     Dates: start: 2004, end: 2006
  4. PROVENTIL (ALBUTEROL) [Concomitant]
  5. ZOLOFT [Concomitant]
  6. CAFFEINE (CAFFEINE) [Concomitant]
  7. IRON (UNSPECIFIED) (+) VITAMINS (UNSPECIFIED) [Concomitant]

REACTIONS (14)
  - PULMONARY EMBOLISM [None]
  - BRONCHITIS [None]
  - Candida infection [None]
  - PHARYNGITIS [None]
  - EPISTAXIS [None]
  - SPINAL DISORDER [None]
  - TINEA INFECTION [None]
  - FOLLICULITIS [None]
  - DERMATITIS CONTACT [None]
  - DEPRESSION [None]
  - BACK PAIN [None]
  - PULMONARY INFARCTION [None]
  - Candida infection [None]
  - Off label use [None]
